FAERS Safety Report 20347707 (Version 1)
Quarter: 2022Q1

REPORT INFORMATION
  Report Type: Report from Study
  Country: US (occurrence: US)
  Receive Date: 20220118
  Receipt Date: 20220118
  Transmission Date: 20220424
  Serious: Yes (Other)
  Sender: FDA-Public Use
  Company Number: US-GILEAD-2022-0565521

PATIENT
  Age: 44 Year
  Sex: Male

DRUGS (2)
  1. AXICABTAGENE CILOLEUCEL [Suspect]
     Active Substance: AXICABTAGENE CILOLEUCEL
     Indication: Diffuse large B-cell lymphoma
     Dosage: UNK
     Route: 042
     Dates: start: 20180910, end: 20180910
  2. CIPRO BASE [Concomitant]
     Dosage: UNKNOWN
     Dates: start: 2018

REACTIONS (4)
  - Nephrolithiasis [Unknown]
  - Liver function test abnormal [Unknown]
  - Dizziness postural [Unknown]
  - Blood pressure abnormal [Unknown]

NARRATIVE: CASE EVENT DATE: 20180101
